FAERS Safety Report 25996946 (Version 1)
Quarter: 2025Q4

REPORT INFORMATION
  Report Type: Spontaneous
  Country: CN (occurrence: CN)
  Receive Date: 20251104
  Receipt Date: 20251104
  Transmission Date: 20260118
  Serious: Yes (Other)
  Sender: BRISTOL-MYERS SQUIBB COMPANY
  Company Number: CN-BRISTOL-MYERS SQUIBB COMPANY-2025-149497

PATIENT
  Age: 71 Year
  Sex: Male

DRUGS (5)
  1. OPDIVO [Suspect]
     Active Substance: NIVOLUMAB
     Indication: Adenocarcinoma gastric
     Dosage: D1, DRUG USE-TIMES: 1?DRUG USE-DAYS:1
     Route: 041
     Dates: start: 20250530, end: 20250530
  2. FLUOROURACIL [Suspect]
     Active Substance: FLUOROURACIL
     Indication: Adenocarcinoma gastric
     Dosage: DRUG USE-TIMES: 1?DRUG USE-DAYS:1?D1
     Route: 042
     Dates: start: 20250530, end: 20250530
  3. FLUOROURACIL [Suspect]
     Active Substance: FLUOROURACIL
     Dosage: DRUG USE-TIMES: 1?DRUG USE-DAYS:1 ADMINISTRATION ROUTE: INJECTION VIA PUMP?CIV 46H
     Route: 042
     Dates: start: 20250530, end: 20250530
  4. IRINOTECAN HYDROCHLORIDE [Suspect]
     Active Substance: IRINOTECAN HYDROCHLORIDE
     Indication: Adenocarcinoma gastric
     Dosage: DRUG USE-TIMES: 1?DRUG USE-DAYS:1, D1
     Route: 041
     Dates: start: 20250530, end: 20250530
  5. LEUCOVORIN CALCIUM [Concomitant]
     Active Substance: LEUCOVORIN CALCIUM
     Indication: Adenocarcinoma gastric
     Dosage: DRUG USE-TIMES: 1?DRUG USE-DAYS:1, D1
     Route: 041
     Dates: start: 20250530, end: 20250530

REACTIONS (2)
  - Myelosuppression [Unknown]
  - Off label use [Unknown]

NARRATIVE: CASE EVENT DATE: 20250602
